FAERS Safety Report 6808212-4 (Version None)
Quarter: 2010Q2

REPORT INFORMATION
  Report Type: 
  Country: None (occurrence: None)
  Receive Date: 20100629
  Receipt Date: 20090507
  Transmission Date: 20101027
  Serious: No
  Sender: FDA-Public Use
  Company Number: US-PFIZER INC-2009196866

PATIENT
  Sex: Female
  Weight: 58.513 kg

DRUGS (2)
  1. ALPRAZOLAM [Suspect]
     Indication: ANXIETY
     Dosage: 0.5 MG, 4X/DAY
  2. ALPRAZOLAM [Suspect]
     Indication: MENIERE'S DISEASE

REACTIONS (4)
  - ANXIETY [None]
  - BALANCE DISORDER [None]
  - DRUG INEFFECTIVE [None]
  - PALPITATIONS [None]
